FAERS Safety Report 9049457 (Version 6)
Quarter: 2013Q2

REPORT INFORMATION
  Report Type: Spontaneous
  Country: US (occurrence: US)
  Receive Date: 20130205
  Receipt Date: 20130619
  Transmission Date: 20140414
  Serious: Yes (Death, Hospitalization)
  Sender: FDA-Public Use
  Company Number: US-GLAXOSMITHKLINE-A1007357A

PATIENT
  Sex: Female

DRUGS (1)
  1. FLOLAN [Suspect]
     Indication: COR PULMONALE CHRONIC
     Dosage: 19NGKM CONTINUOUS
     Route: 042
     Dates: start: 20081018

REACTIONS (7)
  - Urinary tract infection [Unknown]
  - Hospitalisation [Unknown]
  - Endotracheal intubation [Unknown]
  - Loss of consciousness [Unknown]
  - Death [Fatal]
  - Injection site discharge [Unknown]
  - Application site reaction [Unknown]
